FAERS Safety Report 17004034 (Version 1)
Quarter: 2019Q4

REPORT INFORMATION
  Report Type: Spontaneous
  Country: DE (occurrence: DE)
  Receive Date: 20191107
  Receipt Date: 20191107
  Transmission Date: 20200122
  Serious: Yes (Other)
  Sender: FDA-Public Use
  Company Number: DE-009507513-1911DEU000241

PATIENT
  Age: 88 Year
  Sex: Female

DRUGS (1)
  1. KEYTRUDA [Suspect]
     Active Substance: PEMBROLIZUMAB
     Indication: HEAD AND NECK CANCER
     Dosage: UNK
     Dates: start: 201906

REACTIONS (4)
  - Decreased appetite [Unknown]
  - Malnutrition [Unknown]
  - Dementia [Unknown]
  - Amnesia [Unknown]

NARRATIVE: CASE EVENT DATE: 2019
